FAERS Safety Report 8260028-0 (Version None)
Quarter: 2012Q1

REPORT INFORMATION
  Report Type: 
  Country: None (occurrence: None)
  Receive Date: 20120327
  Receipt Date: 20080423
  Transmission Date: 20120608
  Serious: Yes (Hospitalization)
  Sender: FDA-Public Use
  Company Number: PHEH2008US04049

PATIENT
  Sex: Male

DRUGS (3)
  1. PROTONIX [Concomitant]
  2. GLEEVEC [Suspect]
     Dosage: 400 MG,
     Dates: start: 20070312
  3. REGLAN [Concomitant]

REACTIONS (4)
  - VOMITING [None]
  - SKIN DISORDER [None]
  - MUSCLE SPASMS [None]
  - DIARRHOEA [None]
